FAERS Safety Report 10187302 (Version 1)
Quarter: 2014Q2

REPORT INFORMATION
  Report Type: Spontaneous
  Country: US (occurrence: None)
  Receive Date: 20140520
  Receipt Date: 20140520
  Transmission Date: 20141212
  Serious: Yes (Hospitalization)
  Sender: FDA-Public Use
  Company Number: 2014-US-006110

PATIENT
  Age: 61 Year
  Sex: Female

DRUGS (6)
  1. CLOZAPINE [Suspect]
     Indication: SCHIZOPHRENIA
     Route: 048
  2. CLONAZEPAM (CLONAZEPAM) (CLONAZEPAM) [Concomitant]
  3. MIRTAZAPINE (MIRTAZAPINE) [Concomitant]
  4. CEFTRIAXONE (CEFTRIAXONE SODIUM) (INJECTION) [Concomitant]
  5. VANCOMYCIN HCL (VANCOMYCIN HYDROCHLORIDE) [Concomitant]
  6. ERTAPENEM (ERTAPENEM) [Concomitant]

REACTIONS (5)
  - Toxicity to various agents [None]
  - Sepsis [None]
  - Staphylococcus test positive [None]
  - Somnolence [None]
  - Confusional state [None]
